FAERS Safety Report 5786684-4 (Version None)
Quarter: 2008Q2

REPORT INFORMATION
  Report Type: 
  Country: None (occurrence: None)
  Receive Date: 20080618
  Receipt Date: 20080604
  Transmission Date: 20081010
  Serious: Yes (Death, Hospitalization)
  Sender: FDA-Public Use
  Company Number: 1-16234423

PATIENT
  Sex: Female
  Weight: 3 kg

DRUGS (1)
  1. AMMONUL [Suspect]
     Indication: HYPERAMMONAEMIA
     Dates: start: 20080511

REACTIONS (5)
  - AMMONIA INCREASED [None]
  - BRAIN OEDEMA [None]
  - DIALYSIS [None]
  - DRUG INEFFECTIVE [None]
  - NEONATAL DISORDER [None]
